FAERS Safety Report 5847258-X (Version None)
Quarter: 2008Q3

REPORT INFORMATION
  Report Type: 
  Country: None (occurrence: None)
  Receive Date: 20080815
  Receipt Date: 20080729
  Transmission Date: 20090109
  Serious: No
  Sender: FDA-Public Use
  Company Number: US-BOEHRINGER INGELHEIM GMBH, GERMANY-2008-BP-11899BP

PATIENT
  Age: 72 Year
  Sex: Female

DRUGS (5)
  1. MICARDIS HCT [Suspect]
     Indication: HYPERTENSION
     Route: 048
     Dates: start: 20080302, end: 20080601
  2. SYNTHROID [Concomitant]
     Indication: THYROID DISORDER
  3. CLONIDINE [Concomitant]
     Indication: HYPERTENSION
  4. ATACAND [Concomitant]
     Indication: HYPERTENSION
  5. COREG [Concomitant]
     Indication: HYPERTENSION

REACTIONS (3)
  - DEHYDRATION [None]
  - SKIN EXFOLIATION [None]
  - SWELLING [None]
